FAERS Safety Report 6235844-7 (Version None)
Quarter: 2009Q2

REPORT INFORMATION
  Report Type: 
  Country: None (occurrence: None)
  Receive Date: 20090619
  Receipt Date: 20070523
  Transmission Date: 20091009
  Serious: Yes (Other)
  Sender: FDA-Public Use
  Company Number: US-ASTRAZENECA-2006UW25657

PATIENT
  Age: 18653 Day
  Sex: Male
  Weight: 92.1 kg

DRUGS (22)
  1. SEROQUEL [Suspect]
     Indication: INSOMNIA
     Route: 048
     Dates: start: 20010819, end: 20060215
  2. SEROQUEL [Suspect]
     Dosage: 300 MG 1 TAB AT NIGHT, 25 MG DAILY.
     Route: 048
     Dates: start: 20010819, end: 20060215
  3. GEODON [Concomitant]
     Dates: start: 20060215
  4. VALIUM [Concomitant]
     Dosage: 10 MG TWO TIMES A DAY TO EVERY EIGHT HOURS
     Dates: start: 20010208
  5. SERZONE [Concomitant]
     Dosage: 150 MG TWO AT NIGHT
     Dates: start: 19980521
  6. ASPIRIN [Concomitant]
     Dates: start: 20040523
  7. FUROSEMIDE [Concomitant]
     Dates: start: 20040523
  8. LEXAPRO [Concomitant]
     Dates: start: 20040523
  9. MIRAPEX [Concomitant]
     Dates: start: 20040523
  10. NEURONTIN [Concomitant]
     Dosage: 800 MG TWO TIMES A DAY, 600 MG THREE TIMES A DAY
     Dates: start: 20040523
  11. NIASPAN [Concomitant]
     Dosage: 100 MG DAILY, 500 MG TWO TIMES A DAY
     Dates: start: 20040523, end: 20050617
  12. POTASSIUM CHLORIDE [Concomitant]
     Dates: start: 20040523
  13. SYNTHROID [Concomitant]
     Dosage: 25 MCG DAILY, 100 MCG ONCE A DAY
     Dates: start: 20040523
  14. ZOCOR [Concomitant]
     Dates: start: 20040523
  15. ANTIVERT [Concomitant]
     Indication: DIZZINESS
     Dates: start: 19990106
  16. HUMULIN R [Concomitant]
     Dosage: 6 UNITS
     Dates: start: 20051210
  17. GLUCOTROL XL [Concomitant]
     Dates: start: 20051209
  18. REQUIP [Concomitant]
     Indication: RESTLESS LEGS SYNDROME
     Dates: start: 20051220
  19. LEVITRA [Concomitant]
     Indication: SEXUAL DYSFUNCTION
     Dates: start: 20051220
  20. WELLBUTRIN SR [Concomitant]
     Dates: start: 20001204
  21. ZYPREXA [Concomitant]
     Dates: start: 20010829
  22. LIPITOR [Concomitant]
     Dates: start: 20011113

REACTIONS (4)
  - DIABETES MELLITUS [None]
  - DIABETIC NEUROPATHY [None]
  - HYPERGLYCAEMIA [None]
  - TYPE 2 DIABETES MELLITUS [None]
